FAERS Safety Report 6884333-5 (Version None)
Quarter: 2010Q3

REPORT INFORMATION
  Report Type: 
  Country: None (occurrence: None)
  Receive Date: 20100729
  Receipt Date: 20070622
  Transmission Date: 20110219
  Serious: No
  Sender: FDA-Public Use
  Company Number: US-PFIZER INC-2007051836

PATIENT
  Sex: Male

DRUGS (1)
  1. CELEBREX [Suspect]
     Indication: GOUT

REACTIONS (3)
  - ERUCTATION [None]
  - EXPIRED DRUG ADMINISTERED [None]
  - GASTRIC DISORDER [None]
